APPROVED DRUG PRODUCT: VERAPAMIL HYDROCHLORIDE
Active Ingredient: VERAPAMIL HYDROCHLORIDE
Strength: 80MG
Dosage Form/Route: TABLET;ORAL
Application: A071423 | Product #001
Applicant: CHARTWELL RX SCIENCES LLC
Approved: May 24, 1988 | RLD: No | RS: No | Type: DISCN